FAERS Safety Report 11657811 (Version 2)
Quarter: 2015Q4

REPORT INFORMATION
  Report Type: Report from Study
  Country: US (occurrence: US)
  Receive Date: 20151023
  Receipt Date: 20151027
  Transmission Date: 20160304
  Serious: No
  Sender: FDA-Public Use
  Company Number: US-ABBVIE-15P-163-1400568-00

PATIENT
  Age: 38 Year
  Sex: Female

DRUGS (3)
  1. NORETHINDRONE ACETATE. [Concomitant]
     Active Substance: NORETHINDRONE ACETATE
     Indication: HOT FLUSH
     Dates: start: 201503
  2. ADDERALL [Concomitant]
     Active Substance: AMPHETAMINE ASPARTATE\AMPHETAMINE SULFATE\DEXTROAMPHETAMINE SACCHARATE\DEXTROAMPHETAMINE SULFATE
     Indication: ATTENTION DEFICIT/HYPERACTIVITY DISORDER
  3. LUPRON DEPOT [Suspect]
     Active Substance: LEUPROLIDE ACETATE
     Indication: ENDOMETRIOSIS
     Route: 065
     Dates: start: 20150204

REACTIONS (12)
  - Insomnia [Not Recovered/Not Resolved]
  - Pain in extremity [Recovering/Resolving]
  - Back pain [Recovering/Resolving]
  - Tremor [Unknown]
  - Arthralgia [Recovering/Resolving]
  - Headache [Recovering/Resolving]
  - Influenza [Recovered/Resolved]
  - Dizziness [Recovering/Resolving]
  - Influenza [Not Recovered/Not Resolved]
  - Hot flush [Not Recovered/Not Resolved]
  - Insomnia [Unknown]
  - Memory impairment [Unknown]

NARRATIVE: CASE EVENT DATE: 201502
